FAERS Safety Report 10462581 (Version 1)
Quarter: 2014Q3

REPORT INFORMATION
  Report Type: Spontaneous
  Country: US (occurrence: US)
  Receive Date: 20140918
  Receipt Date: 20140918
  Transmission Date: 20150326
  Serious: No
  Sender: FDA-Public Use
  Company Number: US-009507513-1409USA008465

PATIENT
  Sex: Female

DRUGS (6)
  1. CLARITIN REDITABS [Suspect]
     Active Substance: LORATADINE
     Indication: EYE PRURITUS
  2. CLARITIN REDITABS [Suspect]
     Active Substance: LORATADINE
     Indication: FEELING ABNORMAL
  3. CLARITIN REDITABS [Suspect]
     Active Substance: LORATADINE
     Indication: OCULAR HYPERAEMIA
     Dosage: UNK, UNKNOWN
     Route: 048
  4. CLARITIN REDITABS [Suspect]
     Active Substance: LORATADINE
     Indication: NASAL DISCOMFORT
  5. CLARITIN REDITABS [Suspect]
     Active Substance: LORATADINE
     Indication: RHINITIS
  6. CLARITIN REDITABS [Suspect]
     Active Substance: LORATADINE
     Indication: RHINORRHOEA

REACTIONS (1)
  - Drug ineffective [Unknown]
